FAERS Safety Report 7002437-3 (Version None)
Quarter: 2010Q3

REPORT INFORMATION
  Report Type: 
  Country: None (occurrence: None)
  Receive Date: 20100917
  Receipt Date: 20100917
  Transmission Date: 20110219
  Serious: Yes (Life-Threatening)
  Sender: FDA-Public Use
  Company Number: None

PATIENT
  Age: 57 Year
  Sex: Female
  Weight: 55.5 kg

DRUGS (1)
  1. ESTRACE [Suspect]
     Indication: MENOPAUSE
     Dosage: 1/4 APPLICATOR FULL EVERY NIGHT VAGINALLY
     Route: 067
     Dates: start: 20080612

REACTIONS (1)
  - MYOCARDIAL INFARCTION [None]
